FAERS Safety Report 9608965 (Version 2)
Quarter: 2013Q4

REPORT INFORMATION
  Report Type: Spontaneous
  Country: US (occurrence: US)
  Receive Date: 20131009
  Receipt Date: 20131115
  Transmission Date: 20140711
  Serious: Yes (Hospitalization, Other)
  Sender: FDA-Public Use
  Company Number: US-PFIZER INC-2013282513

PATIENT
  Age: 86 Year
  Sex: Male
  Weight: 90.25 kg

DRUGS (4)
  1. CELEBREX [Suspect]
     Indication: ARTHROPATHY
     Dosage: UNK
     Dates: start: 2013, end: 2013
  2. CELEBREX [Suspect]
     Indication: ARTHRALGIA
  3. TYLENOL [Suspect]
     Indication: ARTHROPATHY
     Dosage: UNK, AS NEEDED
  4. TYLENOL [Suspect]
     Indication: ARTHRALGIA

REACTIONS (7)
  - Intracranial aneurysm [Unknown]
  - Abasia [Unknown]
  - Cardiac disorder [Unknown]
  - Somnolence [Unknown]
  - Swelling face [Unknown]
  - Hypertension [Recovering/Resolving]
  - Drug ineffective [Unknown]
